FAERS Safety Report 8320384-1 (Version None)
Quarter: 2012Q2

REPORT INFORMATION
  Report Type: 
  Country: None (occurrence: None)
  Receive Date: 20120426
  Receipt Date: 20120426
  Transmission Date: 20120825
  Serious: Yes (Disabling)
  Sender: FDA-Public Use
  Company Number: None

PATIENT
  Sex: Female
  Weight: 65.318 kg

DRUGS (4)
  1. SOMA [Suspect]
     Indication: MUSCLE RIGIDITY
     Dosage: 350 MG QID ORAL 047 1 MONTH X 2
     Route: 048
  2. SOMA [Suspect]
     Indication: PARKINSONISM
     Dosage: 350 MG QID ORAL 047 1 MONTH X 2
     Route: 048
  3. SOMA [Suspect]
     Indication: PARKINSONISM
     Dosage: 350 MG QID ORAL 047 1 MONTH X1
     Route: 048
  4. SOMA [Suspect]
     Indication: MUSCLE RIGIDITY
     Dosage: 350 MG QID ORAL 047 1 MONTH X1
     Route: 048

REACTIONS (3)
  - MUSCLE SPASMS [None]
  - PRODUCT SUBSTITUTION ISSUE [None]
  - MUSCLE RIGIDITY [None]
